FAERS Safety Report 26098181 (Version 1)
Quarter: 2025Q4

REPORT INFORMATION
  Report Type: Spontaneous
  Country: GB (occurrence: GB)
  Receive Date: 20251127
  Receipt Date: 20251127
  Transmission Date: 20260118
  Serious: Yes (Other)
  Sender: COLGATE
  Company Number: None

PATIENT

DRUGS (1)
  1. CHLORHEXIDINE [Suspect]
     Active Substance: CHLORHEXIDINE
     Indication: Tooth extraction
     Dosage: AS DIRECTED
     Dates: start: 20250909, end: 20250910

REACTIONS (3)
  - Skin exfoliation [Not Recovered/Not Resolved]
  - Swollen tongue [Recovered/Resolved]
  - Oral mucosal blistering [Unknown]

NARRATIVE: CASE EVENT DATE: 20250909
